FAERS Safety Report 4697330-5 (Version None)
Quarter: 2005Q2

REPORT INFORMATION
  Report Type: 
  Country: None (occurrence: None)
  Receive Date: 20050620
  Receipt Date: 20050608
  Transmission Date: 20051028
  Serious: Yes (Death, Hospitalization, Other)
  Sender: FDA-Public Use
  Company Number: 2005074305

PATIENT
  Age: 63 Year
  Sex: Male
  Weight: 68 kg

DRUGS (20)
  1. TRANEXAMIC ACID (TRANEXAMIC ACID) [Suspect]
     Indication: HAEMORRHAGE
     Dosage: 1360 MG (680 MG, 2 IN 1 D), INTRAVENOUS
     Route: 042
     Dates: start: 20041028, end: 20041028
  2. PLAVIX [Concomitant]
  3. SIMVASTATIN [Concomitant]
  4. SELO-ZOK (METOPROLOL SUCCINATE) [Concomitant]
  5. ALOPAM (OXAZEPAM) [Concomitant]
  6. NEXIUM [Concomitant]
  7. PRAVACHOL [Concomitant]
  8. INNOHEP [Concomitant]
  9. DICLOXACILLIN SODIUM MONOHYDRATE [Concomitant]
  10. GENTAMICIN [Concomitant]
  11. MORPHINE [Concomitant]
  12. ACETAMINOPHEN [Concomitant]
  13. CODEINE SUL TAB [Concomitant]
  14. AKARIN (CITALOPRAM) [Concomitant]
  15. BLINDED THERAPY (BLINDED THERAPY) [Concomitant]
  16. KODIPAR (CODEINE PHOSPHATE, PARACETAMOL) [Concomitant]
  17. METOPROLOL TARTRATE [Concomitant]
  18. LAKTULOSE ^DAK^ (LACTULOSE) [Concomitant]
  19. PANTOPRAZOLE (PANTOPRZOLE) [Concomitant]
  20. OXYCONTIN [Concomitant]

REACTIONS (21)
  - AGITATION POSTOPERATIVE [None]
  - ANOXIA [None]
  - BLOOD MAGNESIUM DECREASED [None]
  - BLOOD PRESSURE SYSTOLIC INCREASED [None]
  - BRAIN STEM SYNDROME [None]
  - CEREBRAL ARTERY EMBOLISM [None]
  - CEREBRAL INFARCTION [None]
  - CONFUSION POSTOPERATIVE [None]
  - HAEMOGLOBIN DECREASED [None]
  - HYPOVOLAEMIA [None]
  - INFECTION [None]
  - LOSS OF CONSCIOUSNESS [None]
  - MENINGITIS [None]
  - METABOLIC ACIDOSIS [None]
  - OXYGEN SATURATION DECREASED [None]
  - POST PROCEDURAL COMPLICATION [None]
  - POSTOPERATIVE WOUND COMPLICATION [None]
  - PULMONARY EMBOLISM [None]
  - PYREXIA [None]
  - RESPIRATORY RATE INCREASED [None]
  - WOUND HAEMORRHAGE [None]
